FAERS Safety Report 7545958-7 (Version None)
Quarter: 2011Q2

REPORT INFORMATION
  Report Type: 
  Country: None (occurrence: None)
  Receive Date: 20110614
  Receipt Date: 20110601
  Transmission Date: 20111010
  Serious: Yes (Other)
  Sender: FDA-Public Use
  Company Number: PHHY2011CA33192

PATIENT
  Sex: Male

DRUGS (9)
  1. QUETIAPINE [Concomitant]
     Dosage: 150 MG, UNK
  2. SERTRALINE HYDROCHLORIDE [Concomitant]
     Dosage: 50 MG, UNK
  3. BUPROPION HCL [Concomitant]
     Dosage: 300 MG, UNK
  4. ADVAIR DISKUS 100/50 [Concomitant]
     Dosage: 2 PUFFS DAILY
  5. CLOZAPINE [Suspect]
     Indication: SCHIZOPHRENIA
     Dosage: 325 MG, QHS
     Route: 048
     Dates: start: 20110311
  6. FLUOXETINE [Concomitant]
     Dosage: 40 MG, UNK
  7. CITALOPRAM [Concomitant]
     Dosage: 60 MG, UNK
  8. SPIRIVA [Concomitant]
     Dosage: 18 UG, UNK
  9. CLONAZEPAM [Concomitant]
     Dosage: 1.5 MG, UNK

REACTIONS (1)
  - NEOPLASM MALIGNANT [None]
